FAERS Safety Report 25212270 (Version 1)
Quarter: 2025Q2

REPORT INFORMATION
  Report Type: Spontaneous
  Country: CN (occurrence: CN)
  Receive Date: 20250418
  Receipt Date: 20250418
  Transmission Date: 20250717
  Serious: Yes (Death, Other)
  Sender: ROCHE
  Company Number: CN-ROCHE-10000255864

PATIENT
  Age: 61 Year
  Sex: Male

DRUGS (2)
  1. BALOXAVIR MARBOXIL [Suspect]
     Active Substance: BALOXAVIR MARBOXIL
     Indication: Product used for unknown indication
     Route: 065
  2. OSELTAMIVIR [Suspect]
     Active Substance: OSELTAMIVIR
     Indication: Product used for unknown indication
     Route: 065

REACTIONS (40)
  - Death [Fatal]
  - Renal failure [Unknown]
  - Hepatic failure [Unknown]
  - Acute respiratory distress syndrome [Unknown]
  - Toxic shock syndrome [Unknown]
  - Respiratory failure [Unknown]
  - Cytomegalovirus test positive [Unknown]
  - Electrocardiogram ST segment elevation [Unknown]
  - Electrocardiogram ST segment depression [Unknown]
  - Troponin I [Unknown]
  - Pneumonia [Unknown]
  - Bacterial infection [Unknown]
  - Bacteraemia [Unknown]
  - Dysbiosis [Unknown]
  - Fungal infection [Unknown]
  - Cytomegalovirus infection [Unknown]
  - Herpes simplex [Unknown]
  - Antisynthetase syndrome [Unknown]
  - Arteriosclerosis coronary artery [Unknown]
  - Hypoproteinaemia [Unknown]
  - Electrolyte imbalance [Unknown]
  - Metabolic acidosis [Unknown]
  - Lactic acidosis [Unknown]
  - Hyperaemia [Unknown]
  - Peripheral vein thrombosis [Unknown]
  - Leukopenia [Unknown]
  - Lymphopenia [Unknown]
  - Gout [Unknown]
  - Renal cyst [Unknown]
  - Hyperlipidaemia [Unknown]
  - Platelet count decreased [Unknown]
  - Gastrooesophageal reflux disease [Unknown]
  - Aspergillus test positive [Unknown]
  - Acinetobacter test positive [Unknown]
  - Klebsiella test positive [Unknown]
  - Blood pressure decreased [Unknown]
  - Lacunar infarction [Unknown]
  - Body temperature increased [Unknown]
  - Increased bronchial secretion [Unknown]
  - Drug ineffective [Unknown]
